FAERS Safety Report 7741032-5 (Version None)
Quarter: 2011Q3

REPORT INFORMATION
  Report Type: 
  Country: None (occurrence: None)
  Receive Date: 20110909
  Receipt Date: 20110903
  Transmission Date: 20111222
  Serious: No
  Sender: FDA-Public Use
  Company Number: US-BAYER-2011-082699

PATIENT
  Age: 55 Year
  Sex: Female

DRUGS (1)
  1. ULTRAVIST 150 [Suspect]
     Indication: COMPUTERISED TOMOGRAM ABDOMEN
     Dosage: 100 ML, ONCE
     Route: 042
     Dates: start: 20110826, end: 20110826

REACTIONS (1)
  - URTICARIA [None]
